FAERS Safety Report 22185878 (Version 1)
Quarter: 2023Q2

REPORT INFORMATION
  Report Type: Spontaneous
  Country: BE (occurrence: BE)
  Receive Date: 20230407
  Receipt Date: 20230407
  Transmission Date: 20230721
  Serious: No
  Sender: FDA-Public Use
  Company Number: BE-PFIZER INC-PV202300058895

PATIENT
  Age: 27 Year
  Sex: Female

DRUGS (9)
  1. PAXLOVID [Suspect]
     Active Substance: NIRMATRELVIR\RITONAVIR
     Indication: Post-acute COVID-19 syndrome
     Dosage: 300 MG, 2X/DAY
     Dates: start: 20230215, end: 20230301
  2. DIENOGEST [Concomitant]
     Active Substance: DIENOGEST
     Indication: Endometriosis
     Dosage: 2 MG, DAILY
  3. DESLORATADINE [Concomitant]
     Active Substance: DESLORATADINE
     Indication: Asthma
     Dosage: 5 MG, DAILY
  4. PANTOMED [DEXPANTHENOL] [Concomitant]
     Indication: Asthma
     Dosage: 40 MG, DAILY
  5. ASPIRIN [Concomitant]
     Active Substance: ASPIRIN
     Indication: Post-acute COVID-19 syndrome
     Dosage: 80 MG, DAILY
  6. CLOPIDOGREL [Concomitant]
     Active Substance: CLOPIDOGREL BISULFATE
     Indication: Post-acute COVID-19 syndrome
     Dosage: 75 MG, DAILY
  7. PIRACETAM [Concomitant]
     Active Substance: PIRACETAM
     Indication: Tinnitus
     Dosage: 1200 MG, 2X/DAY
  8. PIRACETAM [Concomitant]
     Active Substance: PIRACETAM
     Indication: Post-acute COVID-19 syndrome
  9. BUDESONIDE\FORMOTEROL FUMARATE [Concomitant]
     Active Substance: BUDESONIDE\FORMOTEROL FUMARATE
     Indication: Asthma exercise induced

REACTIONS (9)
  - Feeling abnormal [Unknown]
  - Dysgeusia [Not Recovered/Not Resolved]
  - Feeling cold [Unknown]
  - Body temperature increased [Recovered/Resolved]
  - Mood swings [Unknown]
  - Incorrect dose administered [Unknown]
  - Off label use [Unknown]
  - Product use issue [Unknown]
  - Off label use [Unknown]

NARRATIVE: CASE EVENT DATE: 20230215
